FAERS Safety Report 9965961 (Version 1)
Quarter: 2014Q1

REPORT INFORMATION
  Report Type: Report from Study
  Country: US (occurrence: US)
  Receive Date: 20140305
  Receipt Date: 20140305
  Transmission Date: 20141002
  Serious: No
  Sender: FDA-Public Use
  Company Number: US-ABBVIE-13P-163-1125752-00

PATIENT
  Age: 35 Year
  Sex: Male

DRUGS (7)
  1. HUMIRA [Suspect]
     Indication: CROHN^S DISEASE
     Dates: start: 20130626, end: 20130626
  2. HUMIRA [Suspect]
     Dates: start: 20130710, end: 20130710
  3. HUMIRA [Suspect]
     Dates: start: 20130724
  4. OXYCONTIN [Concomitant]
     Indication: PRODUCT USED FOR UNKNOWN INDICATION
  5. PERCOCET [Concomitant]
     Indication: ABDOMINAL PAIN
     Dosage: 10/325 MG
  6. ZOLOFT [Concomitant]
     Indication: ANXIETY
     Dosage: 200 MG DAILY
  7. KLONOPIN [Concomitant]
     Indication: DEPRESSION

REACTIONS (2)
  - Crohn^s disease [Not Recovered/Not Resolved]
  - Drug ineffective [Not Recovered/Not Resolved]
